FAERS Safety Report 5071754-9 (Version None)
Quarter: 2006Q3

REPORT INFORMATION
  Report Type: 
  Country: None (occurrence: None)
  Receive Date: 20060801
  Receipt Date: 20060719
  Transmission Date: 20061208
  Serious: Yes (Death)
  Sender: FDA-Public Use
  Company Number: GB200607000343

PATIENT
  Age: 47 Year
  Sex: Male

DRUGS (5)
  1. ZYPREXA [Suspect]
     Indication: HYPOMANIA
     Dosage: 10 MG, ORAL
     Route: 048
     Dates: start: 20060509
  2. LITHIUM [Concomitant]
  3. DEPAKOTE [Concomitant]
  4. MODECATE ^SANOFI WINTHROP^ (FLUPHENAZINE DECANOATE) [Concomitant]
  5. ZUCLOPENTHIXOL ACETATE [Concomitant]

REACTIONS (2)
  - CARDIAC ARREST [None]
  - MYOCARDIAL ISCHAEMIA [None]
